FAERS Safety Report 13338462 (Version 1)
Quarter: 2017Q1

REPORT INFORMATION
  Report Type: Spontaneous
  Country: JP (occurrence: JP)
  Receive Date: 20170315
  Receipt Date: 20170315
  Transmission Date: 20170428
  Serious: No
  Sender: FDA-Public Use
  Company Number: JP-LUPIN PHARMACEUTICALS INC.-2016-05786

PATIENT
  Age: 76 Year
  Sex: Female

DRUGS (8)
  1. METHOTREXATE. [Concomitant]
     Active Substance: METHOTREXATE
     Indication: RHEUMATOID ARTHRITIS
     Dosage: 2 MG,AS DIRECTED,
     Route: 065
  2. DICLOFENAC [Suspect]
     Active Substance: DICLOFENAC
     Indication: ULCERATIVE KERATITIS
     Dosage: UNK UNK,TID,
     Route: 065
  3. LANSOPRAZOLE. [Concomitant]
     Active Substance: LANSOPRAZOLE
     Indication: RHEUMATOID ARTHRITIS
     Dosage: 15 MG
     Route: 065
  4. ACETAMINOPHEN. [Suspect]
     Active Substance: ACETAMINOPHEN
     Dosage: 400 MG
     Route: 048
  5. LEVOFLOXACIN. [Suspect]
     Active Substance: LEVOFLOXACIN
     Indication: ULCERATIVE KERATITIS
     Dosage: UNK UNK,TID,
     Route: 065
  6. RINDERON V [Suspect]
     Active Substance: BETAMETHASONE VALERATE
     Indication: ULCERATIVE KERATITIS
     Dosage: UNK UNK,TID,
     Route: 065
  7. ACETAMINOPHEN. [Suspect]
     Active Substance: ACETAMINOPHEN
     Indication: RHEUMATOID ARTHRITIS
     Dosage: 800 MG
     Route: 048
  8. DICLOFENAC [Suspect]
     Active Substance: DICLOFENAC
     Indication: ULCERATIVE KERATITIS
     Dosage: UNK UNK,TID,
     Route: 065

REACTIONS (3)
  - Impaired healing [Unknown]
  - Lacrimal disorder [Recovered/Resolved]
  - Visual impairment [Recovered/Resolved]
